FAERS Safety Report 12597261 (Version 1)
Quarter: 2016Q3

REPORT INFORMATION
  Report Type: Spontaneous
  Country: US (occurrence: None)
  Receive Date: 20160726
  Receipt Date: 20160726
  Transmission Date: 20161109
  Serious: Yes (Hospitalization)
  Sender: FDA-Public Use
  Company Number: None

PATIENT
  Age: 41 Year
  Sex: Female
  Weight: 148.4 kg

DRUGS (4)
  1. VINCRISTINE SULFATE. [Suspect]
     Active Substance: VINCRISTINE SULFATE
     Dates: end: 20160502
  2. MERCAPTOPURINE. [Suspect]
     Active Substance: MERCAPTOPURINE
     Dates: end: 20160502
  3. METHOTREXATE. [Suspect]
     Active Substance: METHOTREXATE
     Dates: end: 20160502
  4. PREDNISONE. [Suspect]
     Active Substance: PREDNISONE
     Dates: end: 20160506

REACTIONS (11)
  - Pyrexia [None]
  - Fatigue [None]
  - Atelectasis [None]
  - Abdominal pain [None]
  - Splenomegaly [None]
  - Hyperbilirubinaemia [None]
  - Dyspnoea [None]
  - Neutropenia [None]
  - Chest pain [None]
  - Thrombocytopenia [None]
  - Acute lymphocytic leukaemia [None]

NARRATIVE: CASE EVENT DATE: 20160715
